FAERS Safety Report 9660993 (Version 1)
Quarter: 2013Q4

REPORT INFORMATION
  Report Type: Spontaneous
  Country: US (occurrence: US)
  Receive Date: 20131031
  Receipt Date: 20131031
  Transmission Date: 20140711
  Serious: Yes (Hospitalization, Other)
  Sender: FDA-Public Use
  Company Number: US-ACTAVIS-2013-19430

PATIENT
  Age: 66 Year
  Sex: Female
  Weight: 82 kg

DRUGS (8)
  1. GELNIQUE 3% (WATSON LABORATORIES) [Suspect]
     Indication: MICTURITION URGENCY
     Dosage: UNK, DAILY
     Route: 061
     Dates: end: 20130408
  2. JANUMET [Concomitant]
     Indication: DIABETES MELLITUS
     Dosage: 50/1000MG, BID
     Route: 048
     Dates: start: 2004
  3. LANTUS [Concomitant]
     Indication: DIABETES MELLITUS
     Dosage: 70 U, DAILY
     Route: 058
     Dates: start: 2004
  4. ALDACTONE                          /00006201/ [Concomitant]
     Indication: DIURETIC THERAPY
     Dosage: UNK, DAILY
     Route: 048
     Dates: start: 2009
  5. ISOSORBIDE [Concomitant]
     Indication: CARDIAC DISORDER
     Dosage: 60 MG, DAILY
     Route: 048
     Dates: start: 2000
  6. FUROSEMIDE [Concomitant]
     Indication: DIURETIC THERAPY
     Dosage: 40 MG, DAILY
     Route: 048
     Dates: start: 2010
  7. METOPROLOL [Concomitant]
     Indication: HYPERTENSION
     Dosage: 100 MG, BID
     Route: 048
     Dates: start: 2000
  8. OMEPRAZOLE [Concomitant]
     Indication: GASTROOESOPHAGEAL REFLUX DISEASE
     Dosage: 40 MG, DAILY
     Route: 048
     Dates: start: 2003

REACTIONS (5)
  - Pneumonia [Recovered/Resolved]
  - Gastric operation [Recovered/Resolved]
  - Staphylococcal infection [Recovered/Resolved]
  - Asthenia [Unknown]
  - Cough [Unknown]
